FAERS Safety Report 9575565 (Version 1)
Quarter: 2013Q4

REPORT INFORMATION
  Report Type: Spontaneous
  Country: US (occurrence: US)
  Receive Date: 20131001
  Receipt Date: 20131001
  Transmission Date: 20140711
  Serious: No
  Sender: FDA-Public Use
  Company Number: US-AMGEN-USASP2012083757

PATIENT
  Age: 25 Year
  Sex: Female

DRUGS (7)
  1. ENBREL [Suspect]
     Indication: PRODUCT USED FOR UNKNOWN INDICATION
     Dosage: 50 MG, QWK
     Dates: start: 201207
  2. SYNTHROID [Concomitant]
     Dosage: 100 MCG, UNK
  3. XANAX [Concomitant]
     Dosage: 0.25 MG, UNK
  4. FISH OIL [Concomitant]
     Dosage: UNK
  5. VITAMIN E                          /00110501/ [Concomitant]
     Dosage: 200 UNIT, UNK
  6. NAPROSYN                           /00256201/ [Concomitant]
     Dosage: 500 MG, UNK
  7. HUMIRA [Concomitant]
     Dosage: UNK

REACTIONS (1)
  - Drug ineffective [Unknown]
